FAERS Safety Report 13429898 (Version 1)
Quarter: 2017Q2

REPORT INFORMATION
  Report Type: Spontaneous
  Country: US (occurrence: US)
  Receive Date: 20170412
  Receipt Date: 20170412
  Transmission Date: 20170830
  Serious: Yes (Hospitalization)
  Sender: FDA-Public Use
  Company Number: US-ASTRAZENECA-2017SE36118

PATIENT
  Age: 68 Year
  Sex: Female
  Weight: 54.4 kg

DRUGS (13)
  1. MELOXICAM. [Concomitant]
     Active Substance: MELOXICAM
     Indication: ARTHRALGIA
     Route: 065
  2. ZOLPIDEM [Concomitant]
     Active Substance: ZOLPIDEM\ZOLPIDEM TARTRATE
     Indication: SLEEP DISORDER
     Dosage: 12.5MG UNKNOWN
     Route: 065
  3. NEXIUM 24HR [Suspect]
     Active Substance: ESOMEPRAZOLE MAGNESIUM
     Indication: OESOPHAGEAL IRRITATION
     Route: 065
  4. HYDROCODONE [Concomitant]
     Active Substance: HYDROCODONE
     Indication: ARTHRITIS
     Dosage: EVERY 4 - 6 HOURS
     Route: 065
  5. NEXIUM [Suspect]
     Active Substance: ESOMEPRAZOLE MAGNESIUM
     Indication: OESOPHAGEAL IRRITATION
     Route: 048
  6. LISINOPRIL. [Suspect]
     Active Substance: LISINOPRIL
     Indication: BLOOD PRESSURE ABNORMAL
     Route: 048
     Dates: start: 201610
  7. ASPIRIN. [Concomitant]
     Active Substance: ASPIRIN
     Indication: BLOOD PRESSURE ABNORMAL
     Route: 065
  8. ORPHENADRINE [Concomitant]
     Active Substance: ORPHENADRINE
     Indication: HYPOTONIA
     Route: 065
  9. METOPROLOL SUCCINATE. [Suspect]
     Active Substance: METOPROLOL SUCCINATE
     Indication: BLOOD PRESSURE ABNORMAL
     Route: 048
  10. OXYCODONE [Concomitant]
     Active Substance: OXYCODONE
     Indication: PAIN
     Dosage: 10.0MG UNKNOWN
     Route: 065
     Dates: start: 201610
  11. PROLIA CALCIUM [Concomitant]
     Indication: BONE DISORDER
     Route: 030
  12. HYDROCODONE [Concomitant]
     Active Substance: HYDROCODONE
     Indication: PAIN
     Dosage: EVERY 4 - 6 HOURS
     Route: 065
  13. OXYGEN. [Concomitant]
     Active Substance: OXYGEN

REACTIONS (17)
  - Muscle mass [Unknown]
  - Product use issue [Unknown]
  - Bone loss [Unknown]
  - Nausea [Unknown]
  - Back pain [Unknown]
  - Pain in extremity [Unknown]
  - Bone deformity [Unknown]
  - Musculoskeletal pain [Unknown]
  - Scoliosis [Unknown]
  - Intervertebral disc disorder [Unknown]
  - Viral upper respiratory tract infection [Recovering/Resolving]
  - Diaphragmatic paralysis [Unknown]
  - Bone disorder [Unknown]
  - Eructation [Unknown]
  - Insomnia [Unknown]
  - Arthritis [Unknown]
  - Abdominal pain upper [Unknown]

NARRATIVE: CASE EVENT DATE: 2002
